FAERS Safety Report 10855473 (Version 2)
Quarter: 2015Q1

REPORT INFORMATION
  Report Type: Spontaneous
  Country: US (occurrence: US)
  Receive Date: 20150223
  Receipt Date: 20150315
  Transmission Date: 20150721
  Serious: No
  Sender: FDA-Public Use
  Company Number: US-ASTRAZENECA-2015SE16632

PATIENT
  Age: 62 Year
  Sex: Female
  Weight: 98 kg

DRUGS (15)
  1. LEVOTHYROXINE [Concomitant]
     Active Substance: LEVOTHYROXINE
  2. BABY ASPIRIN [Concomitant]
     Active Substance: ASPIRIN
  3. THIAMINE HYDROCHLORIDE. [Concomitant]
     Active Substance: THIAMINE HYDROCHLORIDE
  4. LISINOPRIL. [Concomitant]
     Active Substance: LISINOPRIL
  5. FOLIC ACID. [Concomitant]
     Active Substance: FOLIC ACID
  6. FEXOFENADINE [Concomitant]
     Active Substance: FEXOFENADINE\FEXOFENADINE HYDROCHLORIDE
  7. RIBOFLAVIN [Concomitant]
     Active Substance: RIBOFLAVIN
  8. CALCIUM [Concomitant]
     Active Substance: CALCIUM
  9. ASCORBIC ACID. [Concomitant]
     Active Substance: ASCORBIC ACID
  10. NICOTINAMIDE [Concomitant]
     Active Substance: NIACINAMIDE
  11. PANTHENOL [Concomitant]
     Active Substance: PANTHENOL
  12. RETINOL [Concomitant]
     Active Substance: RETINOL
  13. NEXIUM 24HR [Suspect]
     Active Substance: ESOMEPRAZOLE MAGNESIUM
     Route: 048
     Dates: start: 20150205, end: 20150217
  14. NEXIUM [Concomitant]
     Active Substance: ESOMEPRAZOLE MAGNESIUM
  15. ERGOCALCIFEROL. [Concomitant]
     Active Substance: ERGOCALCIFEROL

REACTIONS (4)
  - Joint stiffness [Not Recovered/Not Resolved]
  - Drug ineffective [Unknown]
  - Arthralgia [Not Recovered/Not Resolved]
  - Back pain [Not Recovered/Not Resolved]

NARRATIVE: CASE EVENT DATE: 201502
